FAERS Safety Report 8889829 (Version 3)
Quarter: 2013Q1

REPORT INFORMATION
  Report Type: Spontaneous
  Country: AU (occurrence: None)
  Receive Date: 20121031
  Receipt Date: 20130129
  Transmission Date: 20140127
  Serious: Yes (Hospitalization)
  Sender: FDA-Public Use
  Company Number: 2012AP003540

PATIENT
  Age: 40 Year
  Sex: Female

DRUGS (4)
  1. TRAMADOL [Suspect]
     Indication: PAIN
  2. METHADONE [Suspect]
     Route: 048
  3. METHYLNALTREXONE BROMIDE [Suspect]
     Indication: NARCOTIC BOWEL SYNDROME
     Route: 058
  4. LAXATIVES [Concomitant]

REACTIONS (2)
  - Narcotic bowel syndrome [None]
  - Abdominal pain [None]
